FAERS Safety Report 9839768 (Version 2)
Quarter: 2014Q1

REPORT INFORMATION
  Report Type: Spontaneous
  Country: US (occurrence: US)
  Receive Date: 20140124
  Receipt Date: 20140312
  Transmission Date: 20141002
  Serious: No
  Sender: FDA-Public Use
  Company Number: US-009507513-1312USA012138

PATIENT
  Age: 46 Year
  Sex: Male
  Weight: 99.77 kg

DRUGS (3)
  1. VYTORIN [Suspect]
     Indication: LIPIDS INCREASED
     Dosage: DOSAGE FORM AS 10-20
     Route: 048
     Dates: end: 201311
  2. VYTORIN [Suspect]
     Dosage: TWO VYTORIN 10/20 TABLETS DAILY, TOTAL DIALY DOSE AS 20-40, DURATION AS REPORTED AS 1 MONTH
     Route: 048
     Dates: start: 20131106, end: 20131227
  3. VYTORIN [Suspect]
     Dosage: 1 DF, QD
     Route: 048
     Dates: start: 20131230

REACTIONS (2)
  - Overdose [Unknown]
  - No adverse event [Unknown]
